FAERS Safety Report 23207214 (Version 1)
Quarter: 2023Q4

REPORT INFORMATION
  Report Type: Spontaneous
  Country: US (occurrence: US)
  Receive Date: 20231120
  Receipt Date: 20231120
  Transmission Date: 20240109
  Serious: No
  Sender: FDA-Public Use
  Company Number: US-BRACCO-2023US01260

PATIENT
  Age: 31 Year
  Sex: Male

DRUGS (5)
  1. LUMASON [Suspect]
     Active Substance: SULFUR HEXAFLUORIDE
     Indication: Echocardiogram
     Dosage: 3 ML, SINGLE
     Route: 042
     Dates: start: 20230315, end: 20230315
  2. METOPROLOL [Concomitant]
     Active Substance: METOPROLOL
  3. CRESTOR [Concomitant]
     Active Substance: ROSUVASTATIN CALCIUM
  4. ENTRESTO [Concomitant]
     Active Substance: SACUBITRIL\VALSARTAN
  5. CANRENOATE POTASSIUM [Concomitant]
     Active Substance: CANRENOATE POTASSIUM

REACTIONS (1)
  - Urticaria [Recovered/Resolved]

NARRATIVE: CASE EVENT DATE: 20230315
